FAERS Safety Report 24804750 (Version 2)
Quarter: 2025Q1

REPORT INFORMATION
  Report Type: Spontaneous
  Country: FR (occurrence: FR)
  Receive Date: 20250103
  Receipt Date: 20250110
  Transmission Date: 20250409
  Serious: Yes (Hospitalization)
  Sender: CATALYST PHARMA
  Company Number: FR-CATALYSTPHARMACEUTICALPARTNERS-FR-CATA-24-01649

PATIENT
  Age: 52 Year
  Sex: Female

DRUGS (11)
  1. PERAMPANEL [Suspect]
     Active Substance: PERAMPANEL
     Indication: Temporal lobe epilepsy
     Dosage: 8.0 MILLIGRAM(S) (8 MILLIGRAM(S), 1 IN 1 DAY)
     Route: 048
  2. PERAMPANEL [Suspect]
     Active Substance: PERAMPANEL
     Indication: Suicide attempt
     Dosage: 8.0 MILLIGRAM(S) (8 MILLIGRAM(S), 1 IN 1 DAY)
     Route: 048
     Dates: start: 202404
  3. PERAMPANEL [Suspect]
     Active Substance: PERAMPANEL
     Route: 048
     Dates: start: 20240407, end: 20240407
  4. CLOBAZAM [Interacting]
     Active Substance: CLOBAZAM
     Indication: Temporal lobe epilepsy
     Dosage: 10 MG THREE TIMES A DAY
     Route: 065
     Dates: start: 20240408, end: 202404
  5. CLOBAZAM [Interacting]
     Active Substance: CLOBAZAM
     Indication: Suicide attempt
  6. TEGRETOL [Interacting]
     Active Substance: CARBAMAZEPINE
     Indication: Temporal lobe epilepsy
     Dosage: 400.0 MILLIGRAM(S) (400 MILLIGRAM(S), 1 IN 1 DAY)
     Route: 048
  7. TEGRETOL [Interacting]
     Active Substance: CARBAMAZEPINE
     Indication: Suicide attempt
     Route: 048
     Dates: start: 20240407, end: 20240407
  8. TEGRETOL [Interacting]
     Active Substance: CARBAMAZEPINE
     Dosage: 400.0 MILLIGRAM(S) (400 MILLIGRAM(S), 1 IN 1 DAY)
     Route: 048
     Dates: start: 20240408
  9. CENOBAMATE [Interacting]
     Active Substance: CENOBAMATE
     Indication: Temporal lobe epilepsy
     Dosage: 100.0 MILLIGRAM(S) (100 MILLIGRAM(S), 1 IN 1 DAY)
     Route: 048
  10. CENOBAMATE [Interacting]
     Active Substance: CENOBAMATE
     Indication: Suicide attempt
     Route: 048
     Dates: start: 20240407, end: 20240407
  11. CENOBAMATE [Interacting]
     Active Substance: CENOBAMATE
     Dosage: 100.0 MILLIGRAM(S) (100 MILLIGRAM(S), 1 IN 1 DAY)
     Route: 048
     Dates: start: 202404

REACTIONS (6)
  - Intentional overdose [Recovered/Resolved]
  - Coma [Recovered/Resolved]
  - Suicide attempt [Recovered/Resolved]
  - Toxicity to various agents [Recovered/Resolved]
  - Drug interaction [Unknown]
  - Off label use [Unknown]

NARRATIVE: CASE EVENT DATE: 20240401
